FAERS Safety Report 4955763-3 (Version None)
Quarter: 2006Q1

REPORT INFORMATION
  Report Type: 
  Country: None (occurrence: None)
  Receive Date: 20060127
  Receipt Date: 20050912
  Transmission Date: 20060701
  Serious: Yes (Hospitalization)
  Sender: FDA-Public Use
  Company Number: 2005-US-00419

PATIENT
  Age: 62 Year
  Sex: Female

DRUGS (5)
  1. CLOZAPINE [Suspect]
     Indication: SCHIZOPHRENIA
     Dosage: 400 MG, QD, ORAL
     Route: 048
     Dates: start: 20031101, end: 20050701
  2. LAMOTRIGINE [Concomitant]
  3. CLONAZEPAM [Concomitant]
  4. TRIHEXYPHENIDYL HCL [Concomitant]
  5. LOXAPINE [Concomitant]

REACTIONS (1)
  - TREATMENT NONCOMPLIANCE [None]
